FAERS Safety Report 5411360-7 (Version None)
Quarter: 2007Q3

REPORT INFORMATION
  Report Type: 
  Country: None (occurrence: None)
  Receive Date: 20070810
  Receipt Date: 20070806
  Transmission Date: 20080115
  Serious: Yes (Other)
  Sender: FDA-Public Use
  Company Number: FR-BRISTOL-MYERS SQUIBB COMPANY-13869854

PATIENT
  Age: 77 Year
  Sex: Female
  Weight: 62 kg

DRUGS (3)
  1. ELISOR [Suspect]
     Indication: HYPERCHOLESTEROLAEMIA
     Route: 048
     Dates: start: 20070201
  2. BONIVA [Interacting]
     Indication: OSTEOPOROSIS
     Route: 048
     Dates: start: 20070502, end: 20070602
  3. COTAREG [Interacting]
     Indication: HYPERTENSION
     Dates: start: 20031201

REACTIONS (4)
  - BRONCHOSPASM [None]
  - DRUG INTERACTION [None]
  - TONGUE OEDEMA [None]
  - URTICARIA [None]
